FAERS Safety Report 8401698-3 (Version None)
Quarter: 2012Q2

REPORT INFORMATION
  Report Type: 
  Country: None (occurrence: None)
  Receive Date: 20120601
  Receipt Date: 20120525
  Transmission Date: 20120825
  Serious: Yes (Other)
  Sender: FDA-Public Use
  Company Number: DE-GENZYME-CAMP-1002264

PATIENT
  Sex: Male
  Weight: 63 kg

DRUGS (1)
  1. MABCAMPATH [Suspect]
     Indication: CHRONIC LEUKAEMIA
     Dosage: UNK
     Route: 065
     Dates: start: 20120130, end: 20120521

REACTIONS (7)
  - CHILLS [None]
  - ABDOMINAL PAIN UPPER [None]
  - PYREXIA [None]
  - DYSPHAGIA [None]
  - PERIPHERAL COLDNESS [None]
  - ASTHENIA [None]
  - NAUSEA [None]
